FAERS Safety Report 9690134 (Version 1)
Quarter: 2013Q4

REPORT INFORMATION
  Report Type: Spontaneous
  Country: US (occurrence: None)
  Receive Date: 20131114
  Receipt Date: 20131114
  Transmission Date: 20140711
  Serious: Yes (Other)
  Sender: FDA-Public Use
  Company Number: None

PATIENT
  Age: 36 Year
  Sex: Male

DRUGS (1)
  1. VENLAFAXINE [Suspect]
     Dosage: TAM ORAL
     Route: 048

REACTIONS (3)
  - Thinking abnormal [None]
  - Feeling abnormal [None]
  - Drug ineffective [None]
